FAERS Safety Report 25143450 (Version 2)
Quarter: 2025Q4

REPORT INFORMATION
  Report Type: Spontaneous
  Country: US (occurrence: US)
  Receive Date: 20250401
  Receipt Date: 20251002
  Transmission Date: 20260118
  Serious: Yes (Hospitalization, Other)
  Sender: SANOFI AVENTIS
  Company Number: US-TAKEDA-US202029589

PATIENT
  Sex: Female
  Weight: 90.7 kg

DRUGS (13)
  1. DUPIXENT [Suspect]
     Active Substance: DUPILUMAB
     Indication: Hypogammaglobulinaemia
     Dosage: UNK
     Route: 065
  2. PSEUDOEPHEDRINE HYDROCHLORIDE [Suspect]
     Active Substance: PSEUDOEPHEDRINE HYDROCHLORIDE
     Indication: Immunodeficiency common variable
     Dosage: UNK
     Route: 065
  3. HUMAN IMMUNOGLOBULIN G [Suspect]
     Active Substance: HUMAN IMMUNOGLOBULIN G
  4. CUVITRU [Suspect]
     Active Substance: HUMAN IMMUNOGLOBULIN G
     Indication: Immunodeficiency common variable
     Dosage: 22 G, QW
     Route: 058
     Dates: start: 20220108
  5. CUVITRU [Suspect]
     Active Substance: HUMAN IMMUNOGLOBULIN G
     Indication: Primary immunodeficiency syndrome
     Dosage: 22 G, QW
     Route: 058
     Dates: start: 20220204
  6. CUVITRU [Suspect]
     Active Substance: HUMAN IMMUNOGLOBULIN G
     Indication: Hypogammaglobulinaemia
  7. XEOMIN [Suspect]
     Active Substance: INCOBOTULINUMTOXINA
     Indication: Primary immunodeficiency syndrome
     Dosage: UNK, QD
     Route: 065
     Dates: start: 20220907
  8. AMOXICILLIN AND CLAVULANATE POTASSIUM [Concomitant]
     Active Substance: AMOXICILLIN\CLAVULANATE POTASSIUM
     Dosage: UNK
     Route: 065
  9. ACETAMINOPHEN [Concomitant]
     Active Substance: ACETAMINOPHEN
     Dosage: UNK
     Route: 065
  10. EPINEPHRINE [Concomitant]
     Active Substance: EPINEPHRINE
     Dosage: UNK
     Route: 065
  11. DIPHENHYDRAMINE HYDROCHLORIDE [Concomitant]
     Active Substance: DIPHENHYDRAMINE HYDROCHLORIDE
     Dosage: UNK
     Route: 065
  12. LIDOCAINE [Concomitant]
     Active Substance: LIDOCAINE
  13. DIPHENHYDRAMINE [Concomitant]
     Active Substance: DIPHENHYDRAMINE

REACTIONS (39)
  - Cervical spinal stenosis [Unknown]
  - Pneumonia [Not Recovered/Not Resolved]
  - Scleroderma [Unknown]
  - Impaired gastric emptying [Unknown]
  - Thrombosis [Unknown]
  - Infusion related reaction [Unknown]
  - Hordeolum [Unknown]
  - Eye disorder [Unknown]
  - Limb discomfort [Unknown]
  - Eye allergy [Unknown]
  - Blood immunoglobulin A decreased [Unknown]
  - Dust allergy [Unknown]
  - Mite allergy [Unknown]
  - Respiratory tract infection [Unknown]
  - Allergic sinusitis [Unknown]
  - Illness [Unknown]
  - Gastroenteritis viral [Unknown]
  - COVID-19 [Recovered/Resolved]
  - Oesophageal motility disorder [Unknown]
  - Asthma [Unknown]
  - Balance disorder [Unknown]
  - Dyspepsia [Unknown]
  - Pain [Unknown]
  - Arthritis [Unknown]
  - Tendon disorder [Unknown]
  - Occipital neuralgia [Unknown]
  - Depression [Unknown]
  - Brain fog [Unknown]
  - Stress [Unknown]
  - Cough [Unknown]
  - Malaise [Unknown]
  - Somnolence [Unknown]
  - Fatigue [Unknown]
  - Nausea [Unknown]
  - Dyspnoea [Unknown]
  - Sinusitis [Not Recovered/Not Resolved]
  - Urinary tract infection [Not Recovered/Not Resolved]
  - Dizziness [Unknown]
  - Product use in unapproved indication [Unknown]

NARRATIVE: CASE EVENT DATE: 20230206
